FAERS Safety Report 9823220 (Version 5)
Quarter: 2014Q2

REPORT INFORMATION
  Report Type: Spontaneous
  Country: US (occurrence: US)
  Receive Date: 20140116
  Receipt Date: 20140414
  Transmission Date: 20141212
  Serious: Yes (Hospitalization)
  Sender: FDA-Public Use
  Company Number: US-TMC-CABO-13003820

PATIENT
  Age: 78 Year
  Sex: Female
  Weight: 73.2 kg

DRUGS (10)
  1. COMETRIQ [Suspect]
     Indication: THYROID CANCER
     Dosage: 100 MG, QD
     Route: 048
     Dates: start: 20131122, end: 20131211
  2. COMETRIQ [Suspect]
     Dosage: 100 MG, QD
     Route: 048
     Dates: end: 20140403
  3. PHENERGAN WITH CODEINE [Concomitant]
  4. LOPERAMIDE [Concomitant]
  5. OYSTER SHELL CALCIUM WITH VITAMIN D [Concomitant]
  6. RANITIDINE [Concomitant]
  7. OMEPRAZOLE [Concomitant]
  8. ALBUTEROL [Concomitant]
  9. LEVOTHYROXINE [Concomitant]
  10. POTASSIUM BICARBONATE AND CHLORIDE [Concomitant]

REACTIONS (9)
  - Gastrooesophageal reflux disease [Unknown]
  - Diarrhoea [Unknown]
  - Malaise [Unknown]
  - Dysstasia [Unknown]
  - Reflexes abnormal [Unknown]
  - Dizziness [Unknown]
  - Asthenia [Unknown]
  - Eating disorder [Unknown]
  - Fluid intake reduced [Unknown]
